FAERS Safety Report 8615209-0 (Version None)
Quarter: 2012Q3

REPORT INFORMATION
  Report Type: 
  Country: None (occurrence: None)
  Receive Date: 20120823
  Receipt Date: 20120820
  Transmission Date: 20120928
  Serious: Yes (Hospitalization)
  Sender: FDA-Public Use
  Company Number: DK-PFIZER INC-2012204801

PATIENT
  Age: 42 Year
  Sex: Female

DRUGS (4)
  1. MORPHINE SULFATE [Suspect]
     Indication: EPIDURAL ANALGESIA
     Dosage: UNK
     Route: 008
  2. ROPIVACAINE [Suspect]
     Indication: EPIDURAL ANALGESIA
     Dosage: UNK
     Route: 008
  3. LIDOCAINE HYDROCHLORIDE [Suspect]
     Indication: EPIDURAL ANALGESIA
     Dosage: UNK
     Route: 008
  4. BUPIVACAINE HCL [Suspect]
     Indication: EPIDURAL ANALGESIA
     Dosage: UNK
     Route: 008

REACTIONS (1)
  - HYPERAESTHESIA [None]
